FAERS Safety Report 12246562 (Version 1)
Quarter: 2016Q2

REPORT INFORMATION
  Report Type: Spontaneous
  Country: BR (occurrence: BR)
  Receive Date: 20160407
  Receipt Date: 20160407
  Transmission Date: 20160815
  Serious: Yes (Hospitalization)
  Sender: FDA-Public Use
  Company Number: BR-SA-2016SA066752

PATIENT
  Age: 65 Year
  Sex: Female
  Weight: 47 kg

DRUGS (4)
  1. LOSARTAN. [Concomitant]
     Active Substance: LOSARTAN
     Indication: BLOOD PRESSURE MEASUREMENT
     Dosage: STRENGTH: 50 MG?ONCE A DAY AT ?8 A.M
     Route: 048
  2. GLIMEPIRIDE. [Concomitant]
     Active Substance: GLIMEPIRIDE
     Dosage: SYRENGTH: 4MG?ONCE A DAY AT 8 A.M.
     Route: 048
  3. LANTUS [Suspect]
     Active Substance: INSULIN GLARGINE
     Route: 065
  4. CLIKSTAR [Concomitant]
     Active Substance: CLIKSTAR
     Dosage: BATCH NUMBER: O123?ONCE A DAY AT ?8 A.M
     Dates: start: 2007

REACTIONS (3)
  - Dyskinesia [Unknown]
  - Wrong technique in product usage process [Unknown]
  - Influenza [Unknown]
